FAERS Safety Report 9034453 (Version 1)
Quarter: 2013Q1

REPORT INFORMATION
  Report Type: Spontaneous
  Country: US (occurrence: None)
  Receive Date: 20130116
  Receipt Date: 20130116
  Transmission Date: 20140127
  Serious: Yes (Death)
  Sender: FDA-Public Use
  Company Number: None

PATIENT
  Age: 63 Year
  Sex: Male
  Weight: 97.07 kg

DRUGS (11)
  1. HEPARIN [Suspect]
     Indication: CORONARY ARTERY BYPASS
     Dosage: 35 K UNITS IV
     Dates: start: 20121208
  2. HEPARIN [Suspect]
     Indication: CORONARY ARTERY BYPASS
     Dosage: 10 K UNITS IV
     Dates: start: 20121208
  3. ASA [Concomitant]
  4. LOPRESSOR [Concomitant]
  5. LIPITOR [Concomitant]
  6. ALBUTEROL [Concomitant]
  7. SPIRIVA [Concomitant]
  8. EFFEXOR [Concomitant]
  9. APIDRA [Concomitant]
  10. NITRO [Concomitant]
  11. VASOTEC [Suspect]

REACTIONS (3)
  - Procedural hypotension [None]
  - Thoracic haemorrhage [None]
  - Lactic acidosis [None]
